FAERS Safety Report 5923952-7 (Version None)
Quarter: 2008Q3

REPORT INFORMATION
  Report Type: 
  Country: None (occurrence: None)
  Receive Date: 20080909
  Receipt Date: 20080508
  Transmission Date: 20090109
  Serious: Yes (Hospitalization)
  Sender: FDA-Public Use
  Company Number: 163-20785-08050080

PATIENT
  Age: 61 Year
  Sex: Female
  Weight: 81.82 kg

DRUGS (3)
  1. THALOMID [Suspect]
     Indication: UTERINE CANCER
     Dosage: 200MG DOSE IS TO BE ESCALATED BY 200MG INCREMENTS Q2W MAX DOSE 1000MG/DAY, ORAL
     Route: 048
     Dates: start: 20080213, end: 20080407
  2. STEROIDS (CORTICOSTEROID NOS) [Concomitant]
  3. LASIX [Concomitant]

REACTIONS (3)
  - DYSPNOEA [None]
  - MALIGNANT PLEURAL EFFUSION [None]
  - RESPIRATORY DISTRESS [None]
